FAERS Safety Report 6191330-4 (Version None)
Quarter: 2009Q2

REPORT INFORMATION
  Report Type: 
  Country: None (occurrence: None)
  Receive Date: 20090515
  Receipt Date: 20090511
  Transmission Date: 20091009
  Serious: Yes (Hospitalization)
  Sender: FDA-Public Use
  Company Number: CA-CELGENEUS-163-C5013-09030612

PATIENT
  Sex: Male
  Weight: 130.9 kg

DRUGS (10)
  1. CC-5013 [Suspect]
     Route: 048
     Dates: end: 20090303
  2. CC-5013 [Suspect]
     Route: 048
     Dates: start: 20081209
  3. NEUPOGEN [Concomitant]
     Indication: NEUTROPENIA
     Route: 065
  4. ALLOPURINOL [Concomitant]
     Indication: PROPHYLAXIS
     Route: 048
     Dates: start: 20081209
  5. TOPROL-XL [Concomitant]
     Route: 048
     Dates: start: 20080101
  6. LISINOPRIL [Concomitant]
     Indication: HYPERTENSION
     Route: 048
     Dates: start: 20080101
  7. ASCORBIC ACID [Concomitant]
     Route: 048
     Dates: start: 20080101
  8. METAMUCIL [Concomitant]
     Indication: CONSTIPATION PROPHYLAXIS
     Route: 048
     Dates: start: 20080101
  9. NEUPOGEN [Concomitant]
     Indication: LEUKOPENIA
     Route: 051
     Dates: start: 20081117, end: 20081119
  10. NEUPOGEN [Concomitant]
     Indication: NEUTROPENIA
     Route: 051
     Dates: start: 20081223

REACTIONS (2)
  - JC VIRUS INFECTION [None]
  - PROGRESSIVE MULTIFOCAL LEUKOENCEPHALOPATHY [None]
